FAERS Safety Report 11847904 (Version 1)
Quarter: 2015Q4

REPORT INFORMATION
  Report Type: Spontaneous
  Country: GB (occurrence: GB)
  Receive Date: 20151217
  Receipt Date: 20151217
  Transmission Date: 20160305
  Serious: Yes (Life-Threatening)
  Sender: FDA-Public Use
  Company Number: GB-FRESENIUS KABI-FK201506565

PATIENT
  Age: 65 Year
  Sex: Female
  Weight: 58 kg

DRUGS (4)
  1. CYCLIZINE [Concomitant]
     Active Substance: CYCLIZINE
  2. MEBEVERINE [Concomitant]
     Active Substance: MEBEVERINE
  3. GEMCITABINE [Suspect]
     Active Substance: GEMCITABINE\GEMCITABINE HYDROCHLORIDE
     Indication: PANCREATIC CARCINOMA
     Route: 042
     Dates: start: 20150701, end: 20151119
  4. DEXAMETASONE [Concomitant]
     Active Substance: DEXAMETHASONE

REACTIONS (5)
  - Visual impairment [Not Recovered/Not Resolved]
  - Thrombosis [Recovering/Resolving]
  - Coordination abnormal [Not Recovered/Not Resolved]
  - Transient ischaemic attack [Unknown]
  - Pulmonary embolism [Unknown]

NARRATIVE: CASE EVENT DATE: 20151122
